FAERS Safety Report 24386115 (Version 3)
Quarter: 2024Q4

REPORT INFORMATION
  Report Type: Spontaneous
  Country: US (occurrence: US)
  Receive Date: 20241001
  Receipt Date: 20241007
  Transmission Date: 20250114
  Serious: No
  Sender: PURDUE
  Company Number: US-PURDUE PHARMA-USA-2024-0312283

PATIENT
  Age: 64 Year
  Sex: Female
  Weight: 77.11 kg

DRUGS (2)
  1. BUPRENORPHINE [Suspect]
     Active Substance: BUPRENORPHINE
     Indication: Pain management
     Dosage: 20 MCG/HR, DIRECTLY ONTO SKIN [APPLY 1 PATCH TOPICALLY TO THE AFFECTED AREA EVERY SEVEN DAYS (QTY 4
     Route: 062
     Dates: start: 202408
  2. ACTHAR [Suspect]
     Active Substance: CORTICOTROPIN
     Indication: Ankylosing spondylitis
     Dosage: 1 MG/80 ML, EVERY 72 HOURS
     Route: 042

REACTIONS (9)
  - Scar [Not Recovered/Not Resolved]
  - Illness [Unknown]
  - Pain in extremity [Recovered/Resolved]
  - Pyrexia [Recovered/Resolved]
  - Product adhesion issue [Unknown]
  - Device leakage [Unknown]
  - Wrong technique in device usage process [Unknown]
  - Rash [Recovered/Resolved]
  - Unevaluable event [Unknown]

NARRATIVE: CASE EVENT DATE: 20240920
